FAERS Safety Report 5430432-4 (Version None)
Quarter: 2007Q3

REPORT INFORMATION
  Report Type: 
  Country: None (occurrence: None)
  Receive Date: 20070830
  Receipt Date: 20070819
  Transmission Date: 20080115
  Serious: Yes (Hospitalization)
  Sender: FDA-Public Use
  Company Number: JP-KINGPHARMUSA00001-K200701071

PATIENT

DRUGS (1)
  1. QUIBRON-T/SR [Suspect]
     Indication: ASTHMA
     Dates: start: 19980101, end: 20030301

REACTIONS (3)
  - HYPERCALCAEMIA [None]
  - HYPOCALCIURIA [None]
  - RENAL FAILURE [None]
